FAERS Safety Report 4724541-2 (Version None)
Quarter: 2005Q3

REPORT INFORMATION
  Report Type: 
  Country: None (occurrence: None)
  Receive Date: 20050719
  Receipt Date: 20050719
  Transmission Date: 20060218
  Serious: No
  Sender: FDA-Public Use
  Company Number: None

PATIENT
  Age: 65 Year
  Sex: Female
  Weight: 54.4316 kg

DRUGS (1)
  1. ZOCOR [Suspect]
     Indication: HYPERLIPIDAEMIA
     Dosage: ONE PO HS
     Route: 048
     Dates: start: 20050624, end: 20050705

REACTIONS (3)
  - DYSPEPSIA [None]
  - HYPOAESTHESIA [None]
  - PAIN IN EXTREMITY [None]
